FAERS Safety Report 16380787 (Version 2)
Quarter: 2019Q2

REPORT INFORMATION
  Report Type: Spontaneous
  Country: GB (occurrence: GB)
  Receive Date: 20190601
  Receipt Date: 20190612
  Transmission Date: 20190711
  Serious: Yes (Other)
  Sender: FDA-Public Use
  Company Number: GB-009507513-1905GBR011494

PATIENT
  Age: 20 Year
  Sex: Female
  Weight: 49.6 kg

DRUGS (2)
  1. NEXPLANON [Suspect]
     Active Substance: ETONOGESTREL
     Dosage: 1 DOSAGE FORM
     Route: 059
     Dates: start: 20190501, end: 20190502
  2. NEXPLANON [Suspect]
     Active Substance: ETONOGESTREL
     Indication: CONTRACEPTION
     Dosage: 1 DOSAGE FORM
     Route: 059
     Dates: end: 20190501

REACTIONS (4)
  - Device deployment issue [Recovered/Resolved]
  - Pain [Recovered/Resolved]
  - Toxicity to various agents [Unknown]
  - Ulnar nerve injury [Recovering/Resolving]

NARRATIVE: CASE EVENT DATE: 201905
